FAERS Safety Report 11734860 (Version 1)
Quarter: 2015Q4

REPORT INFORMATION
  Report Type: Spontaneous
  Country: US (occurrence: None)
  Receive Date: 20151112
  Receipt Date: 20151112
  Transmission Date: 20160304
  Serious: Yes (Hospitalization)
  Sender: FDA-Public Use
  Company Number: None

PATIENT
  Age: 80 Year
  Sex: Male
  Weight: 78.02 kg

DRUGS (10)
  1. PROPAFENONE HCL EXTENDED RELEASE 225 MG. [Suspect]
     Active Substance: PROPAFENONE HYDROCHLORIDE
     Indication: ARRHYTHMIA PROPHYLAXIS
     Route: 048
  2. RYTHMOL SR [Concomitant]
     Active Substance: PROPAFENONE HYDROCHLORIDE
  3. NEXIUM [Concomitant]
     Active Substance: ESOMEPRAZOLE MAGNESIUM
  4. COQ10 [Concomitant]
     Active Substance: UBIDECARENONE
  5. VALSARTAN. [Concomitant]
     Active Substance: VALSARTAN
  6. ELIQUIS [Concomitant]
     Active Substance: APIXABAN
  7. ESTER C [Concomitant]
  8. FISH OIL [Concomitant]
     Active Substance: FISH OIL
  9. HERBAL TEA [Concomitant]
  10. FLAXSEED [Concomitant]
     Active Substance: FLAX SEED

REACTIONS (3)
  - Atrial fibrillation [None]
  - Disease recurrence [None]
  - Product substitution issue [None]

NARRATIVE: CASE EVENT DATE: 20150204
